FAERS Safety Report 6488407-2 (Version None)
Quarter: 2009Q4

REPORT INFORMATION
  Report Type: 
  Country: None (occurrence: None)
  Receive Date: 20091210
  Receipt Date: 20091126
  Transmission Date: 20100525
  Serious: Yes (Other)
  Sender: FDA-Public Use
  Company Number: GB-MYLANLABS-2008S1001117

PATIENT
  Age: 37 Year
  Sex: Male

DRUGS (1)
  1. VERAPAMIL [Suspect]
     Indication: CLUSTER HEADACHE
     Route: 048
     Dates: start: 19960101

REACTIONS (3)
  - DENTAL DISCOMFORT [None]
  - GINGIVAL BLEEDING [None]
  - GINGIVAL HYPERPLASIA [None]
